FAERS Safety Report 9620066 (Version 1)
Quarter: 2013Q4

REPORT INFORMATION
  Report Type: Spontaneous
  Country: FR (occurrence: FR)
  Receive Date: 20131014
  Receipt Date: 20131014
  Transmission Date: 20140711
  Serious: Yes (Life-Threatening)
  Sender: FDA-Public Use
  Company Number: FR-ACTAVIS-2013-18523

PATIENT
  Age: 63 Year
  Sex: Female

DRUGS (7)
  1. CETIRIZINE [Suspect]
     Indication: URTICARIA CHRONIC
     Dosage: 10 MG; UNKNOWN
     Route: 048
     Dates: start: 201304, end: 20130610
  2. BACTRIM [Suspect]
     Indication: PNEUMONIA
     Dosage: 4800 MG, DAILY
     Route: 042
     Dates: start: 20130604, end: 20130609
  3. CYMEVAN [Suspect]
     Indication: CYTOMEGALOVIRUS INFECTION
     Dosage: UNKNOWN
     Route: 042
     Dates: start: 20130607, end: 20130609
  4. INEXIUM /01479302/ [Suspect]
     Indication: PRODUCT USED FOR UNKNOWN INDICATION
     Dosage: 20 MG, DAILY
     Route: 048
     Dates: start: 20130604, end: 20130610
  5. LEDERFOLINE [Suspect]
     Indication: HAEMATOTOXICITY
     Dosage: 15 MG, DAILY
     Route: 048
  6. SOLUPRED                           /00016201/ [Concomitant]
     Indication: PRODUCT USED FOR UNKNOWN INDICATION
     Dosage: UNK, UNK
     Route: 065
  7. LOVENOX [Concomitant]
     Indication: PRODUCT USED FOR UNKNOWN INDICATION
     Dosage: UNK, UNK
     Route: 065

REACTIONS (5)
  - Linear IgA disease [Recovering/Resolving]
  - Face oedema [Recovering/Resolving]
  - Tongue oedema [Recovering/Resolving]
  - Pruritus [Recovering/Resolving]
  - Eosinophilia [Recovered/Resolved with Sequelae]
